FAERS Safety Report 25919160 (Version 2)
Quarter: 2025Q4

REPORT INFORMATION
  Report Type: Report from Study
  Country: EU (occurrence: EU)
  Receive Date: 20251014
  Receipt Date: 20251124
  Transmission Date: 20260119
  Serious: Yes (Death, Hospitalization)
  Sender: NOVARTIS
  Company Number: EU-002147023-NVSC2025DE158318

PATIENT
  Age: 80 Year
  Sex: Female
  Weight: 47 kg

DRUGS (10)
  1. FEMARA [Suspect]
     Active Substance: LETROZOLE
     Indication: Breast cancer
     Dosage: 2.5 MG, QD
     Route: 048
     Dates: start: 20240803, end: 20250807
  2. PALBOCICLIB [Suspect]
     Active Substance: PALBOCICLIB
     Indication: Breast cancer
     Dosage: 75 MG, CYCLICAL (DAILY FROM DAY 1 TO DAY 21EVERY 28 DAY CYCLE: ORAL)
     Route: 048
     Dates: start: 20240803, end: 20250807
  3. MOVICOL [Concomitant]
     Active Substance: POLYETHYLENE GLYCOL 3350\POTASSIUM CHLORIDE\SODIUM BICARBONATE\SODIUM CHLORIDE
     Indication: Constipation
     Dosage: UNK
     Route: 048
  4. ELIQUIS [Concomitant]
     Active Substance: APIXABAN
     Indication: Pulmonary artery thrombosis
     Dosage: UNK
     Route: 048
     Dates: start: 202406
  5. PANTOPRAZOLE SODIUM [Concomitant]
     Active Substance: PANTOPRAZOLE SODIUM
     Indication: Prophylaxis
     Dosage: UNK
     Route: 048
     Dates: start: 202406
  6. METAMIZOL [Concomitant]
     Active Substance: METAMIZOLE SODIUM
     Indication: Chest pain
     Dosage: UNK
     Route: 048
     Dates: start: 202407
  7. Ramidipin [Concomitant]
     Indication: Hypertension
     Dosage: UNK
     Route: 048
  8. Vitagamma [Concomitant]
     Indication: Osteoporosis
     Dosage: UNK
     Route: 048
  9. ALENDRONIC ACID [Concomitant]
     Active Substance: ALENDRONIC ACID
     Indication: Osteoporosis
     Dosage: UNK
     Route: 048
  10. Tilicomp beta [Concomitant]
     Indication: Chest pain
     Dosage: UNK
     Route: 048
     Dates: start: 202407

REACTIONS (1)
  - Ileus [Fatal]

NARRATIVE: CASE EVENT DATE: 20250820
